FAERS Safety Report 9805863 (Version 2)
Quarter: 2014Q1

REPORT INFORMATION
  Report Type: Spontaneous
  Country: US (occurrence: US)
  Receive Date: 20140109
  Receipt Date: 20140205
  Transmission Date: 20141002
  Serious: Yes (Other)
  Sender: FDA-Public Use
  Company Number: US-SA-2014SA002481

PATIENT
  Age: 69 Year
  Sex: Female

DRUGS (4)
  1. ENOXAPARIN SODIUM - WINTHROP [Suspect]
     Indication: ANTICOAGULANT THERAPY
     Route: 065
     Dates: start: 20131205
  2. ENOXAPARIN SODIUM - WINTHROP [Suspect]
     Indication: ANTICOAGULANT THERAPY
     Route: 065
     Dates: start: 20131205
  3. ENOXAPARIN SODIUM - WINTHROP [Suspect]
     Indication: ANTICOAGULANT THERAPY
     Route: 065
     Dates: start: 20131205
  4. ENOXAPARIN SODIUM - WINTHROP [Suspect]
     Indication: ANTICOAGULANT THERAPY
     Route: 065
     Dates: start: 20131205

REACTIONS (2)
  - Vaginal neoplasm [Unknown]
  - Injection site bruising [Recovered/Resolved]
